FAERS Safety Report 6798845-6 (Version None)
Quarter: 2010Q2

REPORT INFORMATION
  Report Type: 
  Country: None (occurrence: None)
  Receive Date: 20100623
  Receipt Date: 20100615
  Transmission Date: 20101027
  Serious: Yes (Other)
  Sender: FDA-Public Use
  Company Number: PL-1181840

PATIENT
  Age: 60 Year
  Sex: Female

DRUGS (1)
  1. AZOPT [Suspect]
     Indication: OPEN ANGLE GLAUCOMA
     Dosage: OPHTHALMIC
     Route: 047
     Dates: start: 20070901, end: 20080501

REACTIONS (10)
  - CORNEAL DEPOSITS [None]
  - CORNEAL EPITHELIUM DEFECT [None]
  - EYE IRRITATION [None]
  - EYE PAIN [None]
  - FOREIGN BODY SENSATION IN EYES [None]
  - KERATITIS [None]
  - OCULAR HYPERAEMIA [None]
  - PHOTOPHOBIA [None]
  - PUNCTATE KERATITIS [None]
  - VISION BLURRED [None]
